FAERS Safety Report 6150275-6 (Version None)
Quarter: 2009Q2

REPORT INFORMATION
  Report Type: 
  Country: None (occurrence: None)
  Receive Date: 20090407
  Receipt Date: 20090323
  Transmission Date: 20091009
  Serious: Yes (Hospitalization)
  Sender: FDA-Public Use
  Company Number: FR-JNJFOC-20090304205

PATIENT
  Age: 70 Year
  Sex: Female
  Weight: 50 kg

DRUGS (2)
  1. DECITABINE (DECITABINE) LYOPHILIZED POWDER [Suspect]
     Indication: CHRONIC MYELOMONOCYTIC LEUKAEMIA
     Dosage: 150 MG, INTRAVENOUS, CYCLE 2
     Route: 042
     Dates: start: 20090202, end: 20090206
  2. DECITABINE (DECITABINE) LYOPHILIZED POWDER [Suspect]
     Indication: CHRONIC MYELOMONOCYTIC LEUKAEMIA
     Dosage: 150 MG, INTRAVENOUS, CYCLE 2
     Route: 042
     Dates: start: 20090302, end: 20090306

REACTIONS (3)
  - DIVERTICULUM INTESTINAL [None]
  - FEBRILE BONE MARROW APLASIA [None]
  - SIGMOIDITIS [None]
